FAERS Safety Report 7062668-3 (Version None)
Quarter: 2010Q4

REPORT INFORMATION
  Report Type: 
  Country: None (occurrence: None)
  Receive Date: 20101026
  Receipt Date: 20091210
  Transmission Date: 20110411
  Serious: No
  Sender: FDA-Public Use
  Company Number: US-PFIZER INC-2009310539

PATIENT
  Sex: Female
  Weight: 69.9 kg

DRUGS (2)
  1. LIPITOR [Suspect]
     Indication: BLOOD CHOLESTEROL INCREASED
     Dosage: 20 MG, 1X/DAY
     Dates: start: 20080101, end: 20091101
  2. VALSARTAN [Concomitant]
     Dosage: 160 MG, 1X/DAY

REACTIONS (3)
  - BLOOD POTASSIUM INCREASED [None]
  - MUSCULAR WEAKNESS [None]
  - MYALGIA [None]
